FAERS Safety Report 9291086 (Version 1)
Quarter: 2013Q2

REPORT INFORMATION
  Report Type: Spontaneous
  Country: DE (occurrence: DE)
  Receive Date: 20130515
  Receipt Date: 20130515
  Transmission Date: 20140414
  Serious: Yes (Other)
  Sender: FDA-Public Use
  Company Number: DE-ASTRAZENECA-2013SE32287

PATIENT
  Age: 30667 Day
  Sex: Female
  Weight: 75 kg

DRUGS (4)
  1. BRILIQUE [Suspect]
     Indication: PERCUTANEOUS CORONARY INTERVENTION
     Route: 048
     Dates: start: 20130331, end: 20130415
  2. ASS [Concomitant]
     Indication: PERCUTANEOUS CORONARY INTERVENTION
     Route: 048
     Dates: start: 20130331
  3. BISOPROLOL [Concomitant]
     Indication: ESSENTIAL HYPERTENSION
     Route: 048
     Dates: start: 20130331
  4. VALSARTAN [Concomitant]
     Indication: ESSENTIAL HYPERTENSION
     Route: 048
     Dates: start: 20130331

REACTIONS (3)
  - Anaemia [Recovered/Resolved]
  - Occult blood positive [Recovered/Resolved]
  - Lower gastrointestinal haemorrhage [Unknown]
